FAERS Safety Report 7937680-X (Version None)
Quarter: 2011Q4

REPORT INFORMATION
  Report Type: 
  Country: None (occurrence: None)
  Receive Date: 20111123
  Receipt Date: 20111115
  Transmission Date: 20120403
  Serious: Yes (Hospitalization, Other)
  Sender: FDA-Public Use
  Company Number: PHEH2005US10714

PATIENT
  Sex: Female

DRUGS (16)
  1. BENADRYL [Concomitant]
  2. ARIMIDEX [Concomitant]
     Dates: start: 20010201
  3. DURAGESIC-100 [Concomitant]
  4. ALBUTEROL [Concomitant]
  5. AREDIA [Suspect]
     Indication: METASTASES TO BONE
     Dosage: 90 MG, QMO
     Route: 041
     Dates: start: 20010201, end: 20020501
  6. NORVASC [Concomitant]
  7. PAXIL [Concomitant]
  8. XALATAN [Concomitant]
  9. ALPHAGAN [Concomitant]
  10. CORTISONE ACETATE [Concomitant]
  11. NEULASTA [Concomitant]
  12. VICODIN [Concomitant]
  13. SUDAFED 12 HOUR [Concomitant]
  14. ACCUPRIL [Concomitant]
  15. ALLEGRA [Concomitant]
  16. COUMADIN [Concomitant]

REACTIONS (85)
  - OSTEOMYELITIS CHRONIC [None]
  - WOUND SECRETION [None]
  - JAW FRACTURE [None]
  - INFLAMMATION [None]
  - HAND FRACTURE [None]
  - GASTROINTESTINAL DISORDER [None]
  - OEDEMA PERIPHERAL [None]
  - LOOSE TOOTH [None]
  - ECCHYMOSIS [None]
  - HYPERTHYROIDISM [None]
  - IRIS ADHESIONS [None]
  - ORAL DISCOMFORT [None]
  - DYSPEPSIA [None]
  - URINARY TRACT INFECTION [None]
  - VISUAL ACUITY REDUCED [None]
  - JOINT STIFFNESS [None]
  - CHRONIC OBSTRUCTIVE PULMONARY DISEASE [None]
  - UMBILICAL HERNIA [None]
  - NEOPLASM MALIGNANT [None]
  - ORTHOSIS USER [None]
  - ATELECTASIS [None]
  - SINUS TACHYCARDIA [None]
  - AORTIC DISORDER [None]
  - MUSCLE SPASMS [None]
  - DEPRESSION [None]
  - OSTEONECROSIS OF JAW [None]
  - ASTHENIA [None]
  - DYSURIA [None]
  - MICTURITION URGENCY [None]
  - COMPUTERISED TOMOGRAM ABNORMAL [None]
  - CARDIOMEGALY [None]
  - ANAEMIA [None]
  - PAIN IN JAW [None]
  - BACTERIAL INFECTION [None]
  - HYPOAESTHESIA [None]
  - BONE LESION [None]
  - TOOTH DISORDER [None]
  - PATHOLOGICAL FRACTURE [None]
  - DEEP VEIN THROMBOSIS [None]
  - PURULENT DISCHARGE [None]
  - HOT FLUSH [None]
  - SOFT TISSUE MASS [None]
  - CYST [None]
  - CONTUSION [None]
  - AORTIC ANEURYSM [None]
  - UPPER RESPIRATORY TRACT INFECTION [None]
  - SWELLING [None]
  - NECK PAIN [None]
  - CARBOHYDRATE ANTIGEN 27.29 INCREASED [None]
  - FALL [None]
  - OSTEOPOROSIS [None]
  - DIZZINESS [None]
  - SINUS POLYP [None]
  - RHINITIS ALLERGIC [None]
  - HUMERUS FRACTURE [None]
  - PARAESTHESIA [None]
  - CATARACT [None]
  - VISION BLURRED [None]
  - ABSCESS [None]
  - INDURATION [None]
  - ERYTHEMA [None]
  - MUSCLE STRAIN [None]
  - MACROCYTOSIS [None]
  - PERIODONTITIS [None]
  - CHEST PAIN [None]
  - SEASONAL ALLERGY [None]
  - AORTIC ARTERIOSCLEROSIS [None]
  - FATIGUE [None]
  - FISTULA [None]
  - CELLULITIS [None]
  - ANKLE FRACTURE [None]
  - CONSTIPATION [None]
  - ABDOMINAL DISCOMFORT [None]
  - MEAN CELL VOLUME ABNORMAL [None]
  - PYREXIA [None]
  - VASCULAR CALCIFICATION [None]
  - CEREBRAL ATROPHY [None]
  - PATELLA FRACTURE [None]
  - JOINT EFFUSION [None]
  - LEUKOPENIA [None]
  - EPISTAXIS [None]
  - ARTHRALGIA [None]
  - NEUROPATHY PERIPHERAL [None]
  - OPEN WOUND [None]
  - CEREBRAL SMALL VESSEL ISCHAEMIC DISEASE [None]
